FAERS Safety Report 19784333 (Version 3)
Quarter: 2021Q4

REPORT INFORMATION
  Report Type: Report from Study
  Country: NO (occurrence: None)
  Receive Date: 20210903
  Receipt Date: 20211112
  Transmission Date: 20220304
  Serious: Yes (Other)
  Sender: FDA-Public Use
  Company Number: NO-ROCHE-2903467

PATIENT
  Age: 74 Year
  Sex: Female
  Weight: 54.2 kg

DRUGS (13)
  1. ATEZOLIZUMAB [Suspect]
     Active Substance: ATEZOLIZUMAB
     Indication: Cervix carcinoma
     Dosage: LAST DOSES PRIOR TO THE EVENT ONSET WAS ON 29-JUL-2021
     Route: 042
     Dates: start: 20210618
  2. LOPERAMIDE [Concomitant]
     Active Substance: LOPERAMIDE
     Indication: Diarrhoea
     Route: 048
     Dates: start: 201507
  3. ACETAMINOPHEN [Concomitant]
     Active Substance: ACETAMINOPHEN
     Indication: Pain
     Route: 048
     Dates: start: 2015
  4. ESTRIOL [Concomitant]
     Active Substance: ESTRIOL
     Indication: Oestrogen deficiency
     Dates: start: 2018
  5. HYLO DUAL [Concomitant]
     Indication: Dry eye
     Dosage: GTT
     Route: 047
     Dates: start: 2019
  6. IDOFORM [Concomitant]
     Dosage: 1 TBL
     Route: 048
     Dates: start: 202104
  7. L-SERINE [Concomitant]
     Dosage: 1 TBI
     Dates: start: 202006
  8. MAGNESIUM [Concomitant]
     Active Substance: MAGNESIUM
     Dates: start: 2020
  9. MENAQUINONE 6 [Concomitant]
     Active Substance: MENAQUINONE 6
     Route: 048
     Dates: start: 2020
  10. ZOPICLONE [Concomitant]
     Active Substance: ZOPICLONE
     Indication: Insomnia
     Route: 048
     Dates: start: 20210624
  11. IBUPROFEN [Concomitant]
     Active Substance: IBUPROFEN
     Indication: Pain
     Route: 048
     Dates: start: 20210707
  12. OXYCODONE HYDROCHLORIDE [Concomitant]
     Active Substance: OXYCODONE HYDROCHLORIDE
     Indication: Pain
     Route: 048
     Dates: start: 20210728
  13. OXYCONTIN [Concomitant]
     Active Substance: OXYCODONE HYDROCHLORIDE
     Indication: Pain
     Route: 048
     Dates: start: 20210728

REACTIONS (1)
  - Large intestine perforation [Recovered/Resolved]

NARRATIVE: CASE EVENT DATE: 20210817
